FAERS Safety Report 15088478 (Version 4)
Quarter: 2018Q3

REPORT INFORMATION
  Report Type: Spontaneous
  Country: FR (occurrence: FR)
  Receive Date: 20180629
  Receipt Date: 20180828
  Transmission Date: 20181010
  Serious: Yes (Hospitalization)
  Sender: FDA-Public Use
  Company Number: FR-CONCORDIA PHARMACEUTICALS INC.-E2B_00013068

PATIENT
  Age: 87 Year
  Sex: Female

DRUGS (15)
  1. DIAMICRON 60 MG, COMPRIM? S?CABLE ? LIB?RATION MODIFI?E [Suspect]
     Active Substance: GLICLAZIDE
     Indication: TYPE 2 DIABETES MELLITUS
     Route: 048
     Dates: end: 201803
  2. ADENURIC 80 MG, COMPRIM? PELLICUL? [Suspect]
     Active Substance: FEBUXOSTAT
     Indication: PRODUCT USED FOR UNKNOWN INDICATION
     Dosage: 1 DF, QOD
     Route: 048
     Dates: start: 201803, end: 201803
  3. ASPIRINE PROTECT 100 MG, COMPRIM? GASTRO?R?SISTANT [Suspect]
     Active Substance: ASPIRIN
     Indication: CARDIAC DISORDER
     Dosage: 1 DF, QD
     Route: 048
     Dates: start: 201803, end: 201803
  4. RIVOTRIL [Suspect]
     Active Substance: CLONAZEPAM
     Indication: PRODUCT USED FOR UNKNOWN INDICATION
     Dosage: 1 DF, QD
     Route: 048
     Dates: start: 201803, end: 201803
  5. LASILIX RETARD 60 MG, G?LULE [Suspect]
     Active Substance: FUROSEMIDE
     Indication: HYPERTENSION
     Dosage: 1 DF, QD
     Route: 048
     Dates: end: 201803
  6. KLIPAL CODEINE 600 MG/50 MG, COMPRIM? [Suspect]
     Active Substance: ACETAMINOPHEN\CODEINE PHOSPHATE
     Indication: PAIN
     Dosage: 4 DF, QD
     Route: 048
     Dates: start: 201803, end: 201803
  7. RISPERDAL [Suspect]
     Active Substance: RISPERIDONE
     Indication: HALLUCINATION
     Dosage: 1 DF, QD
     Route: 048
     Dates: start: 20180324, end: 20180326
  8. RABEPRAZOLE SODIQUE [Suspect]
     Active Substance: RABEPRAZOLE SODIUM
     Indication: PRODUCT USED FOR UNKNOWN INDICATION
     Route: 048
     Dates: end: 201803
  9. UVEDOSE 100 000 UI, SOLUTION BUVABLE EN AMPOULE [Suspect]
     Active Substance: CHOLECALCIFEROL
     Indication: PRODUCT USED FOR UNKNOWN INDICATION
     Route: 048
     Dates: start: 201803, end: 201803
  10. TRANSIPEG (MACROGOL 3350) [Suspect]
     Active Substance: POLYETHYLENE GLYCOL 3350
     Indication: CONSTIPATION
     Route: 048
     Dates: start: 201803, end: 201803
  11. PREDNISOLONE. [Suspect]
     Active Substance: PREDNISOLONE
     Indication: PRODUCT USED FOR UNKNOWN INDICATION
     Dosage: 1 DF, QD
     Route: 048
     Dates: start: 201803, end: 201803
  12. ALPRAZOLAM. [Suspect]
     Active Substance: ALPRAZOLAM
     Indication: DEPRESSION
     Dosage: .25 MG, QD
     Route: 048
     Dates: start: 201803, end: 201803
  13. KAYEXALATE [Suspect]
     Active Substance: SODIUM POLYSTYRENE SULFONATE
     Indication: PRODUCT USED FOR UNKNOWN INDICATION
     Dosage: 2 DF, QD
     Route: 048
     Dates: start: 201803, end: 201803
  14. SIMVASTATINE [Suspect]
     Active Substance: SIMVASTATIN
     Indication: PRODUCT USED FOR UNKNOWN INDICATION
     Dosage: 10 MG, QD
     Route: 048
     Dates: start: 201803, end: 201803
  15. CYMBALTA [Suspect]
     Active Substance: DULOXETINE HYDROCHLORIDE
     Indication: DEPRESSION
     Dosage: 1 DF, QD
     Route: 048
     Dates: start: 201803, end: 201803

REACTIONS (5)
  - Fall [Recovered/Resolved]
  - Head injury [Recovered/Resolved]
  - Urinary retention [Recovered/Resolved]
  - Constipation [Recovered/Resolved]
  - Pneumonia aspiration [Recovered/Resolved]

NARRATIVE: CASE EVENT DATE: 20180326
